FAERS Safety Report 8310608-9 (Version None)
Quarter: 2012Q2

REPORT INFORMATION
  Report Type: 
  Country: None (occurrence: None)
  Receive Date: 20120425
  Receipt Date: 20120425
  Transmission Date: 20120825
  Serious: Yes (Hospitalization)
  Sender: FDA-Public Use
  Company Number: None

PATIENT
  Age: 90 Year
  Sex: Female
  Weight: 60.327 kg

DRUGS (1)
  1. PRADAXA [Suspect]
     Indication: ATRIAL FIBRILLATION
     Dosage: 75MG
     Route: 048

REACTIONS (5)
  - OCCULT BLOOD POSITIVE [None]
  - ASTHENIA [None]
  - DYSPNOEA EXERTIONAL [None]
  - GASTRIC ANTRAL VASCULAR ECTASIA [None]
  - GASTRITIS EROSIVE [None]
